FAERS Safety Report 7285692-4 (Version None)
Quarter: 2011Q1

REPORT INFORMATION
  Report Type: 
  Country: None (occurrence: None)
  Receive Date: 20110210
  Receipt Date: 20110201
  Transmission Date: 20110831
  Serious: Yes (Hospitalization)
  Sender: FDA-Public Use
  Company Number: B0698496A

PATIENT
  Age: 67 Year
  Sex: Male

DRUGS (1)
  1. AVANDIA [Suspect]
     Indication: DIABETES MELLITUS
     Dosage: 8MG PER DAY
     Route: 048
     Dates: start: 20030201, end: 20070101

REACTIONS (4)
  - CARDIAC ARREST [None]
  - CORONARY ARTERY OCCLUSION [None]
  - CORONARY ARTERY BYPASS [None]
  - CARDIAC PACEMAKER INSERTION [None]
